FAERS Safety Report 8859252 (Version 1)
Quarter: 2012Q4

REPORT INFORMATION
  Report Type: 
  Country: US (occurrence: US)
  Receive Date: 20121024
  Receipt Date: 20121024
  Transmission Date: 20130627
  Serious: Yes (Hospitalization, Disabling)
  Sender: FDA-Public Use
  Company Number: US-PFIZER INC-2008158796

PATIENT
  Age: 6 Year
  Sex: Male
  Weight: 18.51 kg

DRUGS (5)
  1. CHILDREN^S MOTRIN [Suspect]
     Indication: COUGH
     Dosage: UNK
     Dates: start: 20030227
  2. CHILDREN^S MOTRIN [Suspect]
     Indication: PYREXIA
  3. ZITHROMAX [Concomitant]
  4. COUGH SYRUP [Concomitant]
  5. TETRYZOLINE HYDROCHLORIDE [Concomitant]

REACTIONS (2)
  - Obliterative bronchiolitis [Recovered/Resolved with Sequelae]
  - Stevens-Johnson syndrome [Recovered/Resolved with Sequelae]
